FAERS Safety Report 8984626 (Version 3)
Quarter: 2013Q1

REPORT INFORMATION
  Report Type: Spontaneous
  Country: US (occurrence: None)
  Receive Date: 20121218
  Receipt Date: 20130215
  Transmission Date: 20140127
  Serious: Yes (Hospitalization)
  Sender: FDA-Public Use
  Company Number: 2012120035

PATIENT
  Age: 61 Year
  Sex: Female
  Weight: 66.9 kg

DRUGS (39)
  1. DEMADEX [Suspect]
     Indication: DIURETIC THERAPY
     Dosage: (20 MG, 2 IN 1 D)
     Route: 048
     Dates: start: 20071115
  2. REVATIO [Suspect]
     Indication: PULMONARY ARTERIAL HYPERTENSION
     Dates: start: 20060209
  3. ZAROXOLYN [Suspect]
     Indication: DIURETIC THERAPY
     Dosage: (2.5 MG, 2 IN 1WK)
     Route: 048
     Dates: start: 20060131
  4. ACARBOSE (ACARBOSE) [Concomitant]
  5. PARACETAMOL (PARACETAMOL) [Concomitant]
  6. ALLOPURINOL [Concomitant]
  7. BACLOFEN (BACLOFEN) [Concomitant]
  8. CALCIUM W/MAGNESIUM (CALCIUM, MAGNESIUM) [Concomitant]
  9. CELECOXIB (CELECOXIB) [Concomitant]
  10. CLONAZEPAM (CLONAZEPAM) (CLONAZEPAM) [Concomitant]
  11. CLOPIDOGREL (CLOPIDOGREL) [Concomitant]
  12. CYANOCOBALAMIN (CYANOCOBALAMIN) [Concomitant]
  13. CYCLOSPORINE (CYCLOSPORINE) [Concomitant]
  14. DICLOFENAC (DICLOFENAC) [Concomitant]
  15. DOMPERIDONE (DOMPERIDONE) [Concomitant]
  16. DOXYCYCLINE (DOXYCYCLINE) [Concomitant]
  17. DULOXETINE [Concomitant]
  18. ESOMEPRAZOLE (ESOMEPRAZOLE) [Concomitant]
  19. CYCLOGESTERIN (ESTROGEN, PROGESTERONE) [Concomitant]
  20. EZETIMIBE (EZETIMIBE) [Concomitant]
  21. FENOFIBRIC ACID (FENOFIBRATE) [Concomitant]
  22. FENTANYL (FENTANYL) [Concomitant]
  23. FEXOFENADINE [Concomitant]
  24. HYDROMORPHONE (HYDROMORPHONE) [Concomitant]
  25. INSULIN DETEMIR (INSULIN DETEMIR) [Concomitant]
  26. IPRATROPIUM (IPRATROPIUM) [Concomitant]
  27. LIDOCAINE (LIDOCAINE) [Concomitant]
  28. LIPITOR (ATORVASTATIN) [Concomitant]
  29. LUNESTA (ESZOPLICONE) [Concomitant]
  30. MODAFINIL (MODAFINIL) [Concomitant]
  31. MULTIVITAMIN (VITAMINS) [Concomitant]
  32. OMEGA-3 FATTY ACIDS (OMEGA-3 FATTY ACIDS) [Concomitant]
  33. OXYGEN (O2) [Concomitant]
  34. FORTAGESIC (PENTAZOCINE, PARACETAMOL) [Concomitant]
  35. MACROGOL (MACROGOL) [Concomitant]
  36. PROTOPIC (TACROLIMUS) [Concomitant]
  37. SITAGLIPTIN (SITAGLIPTIN) [Concomitant]
  38. SURFAK (DOCUSATE SODIUM) [Concomitant]
  39. URSODIOL (URSODEOXYCHOLIC ACID) [Concomitant]

REACTIONS (15)
  - Neurogenic bladder [None]
  - Constipation [None]
  - Blood glucose increased [None]
  - Diastolic dysfunction [None]
  - Left ventricular hypertrophy [None]
  - Mitral valve incompetence [None]
  - Dilatation ventricular [None]
  - Ejection fraction decreased [None]
  - Abdominal distension [None]
  - Blood creatinine increased [None]
  - Anxiety [None]
  - Pain [None]
  - Pulmonary arterial hypertension [None]
  - Condition aggravated [None]
  - Blood urea increased [None]
